FAERS Safety Report 9510717 (Version 1)
Quarter: 2013Q3

REPORT INFORMATION
  Report Type: Spontaneous
  Country: US (occurrence: US)
  Receive Date: 20130909
  Receipt Date: 20130909
  Transmission Date: 20140515
  Serious: No
  Sender: FDA-Public Use
  Company Number: US-009507513-1308USA014785

PATIENT
  Age: 31 Year
  Sex: Female
  Weight: 77.98 kg

DRUGS (3)
  1. NEXPLANON [Suspect]
     Indication: CONTRACEPTION
     Dosage: UNK
     Route: 059
     Dates: start: 20130219, end: 20130823
  2. KEPPRA [Concomitant]
  3. ASPIRIN [Concomitant]
     Dosage: UNK

REACTIONS (3)
  - Menstrual disorder [Unknown]
  - Menorrhagia [Unknown]
  - Hypomenorrhoea [Unknown]
